FAERS Safety Report 26119165 (Version 2)
Quarter: 2025Q4

REPORT INFORMATION
  Report Type: Spontaneous
  Country: US (occurrence: US)
  Receive Date: 20251204
  Receipt Date: 20251204
  Transmission Date: 20260118
  Serious: Yes (Other)
  Sender: GILEAD
  Company Number: US-GILEAD-2025-0738827

PATIENT

DRUGS (1)
  1. DESCOVY [Suspect]
     Active Substance: EMTRICITABINE\TENOFOVIR ALAFENAMIDE FUMARATE
     Indication: Prophylaxis against HIV infection
     Dosage: UNK
     Route: 065
     Dates: start: 2025

REACTIONS (6)
  - Seizure [Recovering/Resolving]
  - Tinnitus [Recovering/Resolving]
  - Malaise [Recovering/Resolving]
  - Brain fog [Recovering/Resolving]
  - Confusional state [Recovering/Resolving]
  - Anxiety [Recovering/Resolving]
